FAERS Safety Report 8510613-3 (Version None)
Quarter: 2012Q3

REPORT INFORMATION
  Report Type: 
  Country: None (occurrence: None)
  Receive Date: 20120716
  Receipt Date: 20120620
  Transmission Date: 20120928
  Serious: No
  Sender: FDA-Public Use
  Company Number: US-BIOGENIDEC-2012BI022131

PATIENT
  Age: 58 Year
  Sex: Female

DRUGS (2)
  1. AVONEX [Suspect]
     Indication: MULTIPLE SCLEROSIS
     Route: 030
     Dates: start: 20020621, end: 20070710
  2. AVONEX [Suspect]
     Route: 030
     Dates: start: 20080519

REACTIONS (3)
  - INJECTION SITE INFECTION [None]
  - COORDINATION ABNORMAL [None]
  - FEAR [None]
